FAERS Safety Report 16394201 (Version 1)
Quarter: 2019Q2

REPORT INFORMATION
  Report Type: Spontaneous
  Country: JP (occurrence: JP)
  Receive Date: 20190605
  Receipt Date: 20190605
  Transmission Date: 20190711
  Serious: Yes (Hospitalization, Disabling)
  Sender: FDA-Public Use
  Company Number: JP-MYLANLABS-2019M1051023

PATIENT
  Age: 72 Year
  Sex: Male
  Weight: 53 kg

DRUGS (16)
  1. ABRAXANE [Concomitant]
     Active Substance: PACLITAXEL
     Dosage: 160 MILLIGRAM, QD
     Route: 042
     Dates: start: 20190220, end: 20190220
  2. CLOPIDOGREL [Suspect]
     Active Substance: CLOPIDOGREL BISULFATE
     Indication: PRODUCT USED FOR UNKNOWN INDICATION
     Dosage: 75 MILLIGRAM, QD
     Route: 048
     Dates: start: 20190319, end: 20190327
  3. METGLUCO [Concomitant]
     Active Substance: METFORMIN HYDROCHLORIDE
     Indication: PRODUCT USED FOR UNKNOWN INDICATION
     Dosage: 750 MILLIGRAM, BID
     Route: 048
     Dates: start: 20190311
  4. NAIXAN                             /00256201/ [Suspect]
     Active Substance: NAPROXEN
     Indication: CANCER PAIN
     Dosage: 100 MILLIGRAM, TID
     Route: 048
     Dates: start: 20190205
  5. NEXIUM [Concomitant]
     Active Substance: ESOMEPRAZOLE MAGNESIUM
     Indication: PRODUCT USED FOR UNKNOWN INDICATION
     Dosage: 20 MILLIGRAM, QD
     Route: 048
     Dates: start: 20190205
  6. GEMCITABINE [Concomitant]
     Active Substance: GEMCITABINE\GEMCITABINE HYDROCHLORIDE
     Indication: PRODUCT USED FOR UNKNOWN INDICATION
     Dosage: 1300 MILLIGRAM, QD
     Route: 042
     Dates: start: 20190213, end: 20190213
  7. GEMCITABINE [Concomitant]
     Active Substance: GEMCITABINE\GEMCITABINE HYDROCHLORIDE
     Dosage: 1300 MILLIGRAM, QD
     Route: 042
     Dates: start: 20190220, end: 20190220
  8. ABRAXANE [Concomitant]
     Active Substance: PACLITAXEL
     Dosage: 160 MILLIGRAM, QD
     Route: 042
     Dates: start: 20190227, end: 20190227
  9. GEMCITABINE [Concomitant]
     Active Substance: GEMCITABINE\GEMCITABINE HYDROCHLORIDE
     Dosage: 1300 MILLIGRAM, QD
     Route: 042
     Dates: start: 20190227, end: 20190227
  10. EQUA [Concomitant]
     Active Substance: VILDAGLIPTIN
     Indication: PRODUCT USED FOR UNKNOWN INDICATION
     Dosage: 50 MILLIGRAM, BID
     Route: 048
     Dates: start: 20190311
  11. ABRAXANE [Concomitant]
     Active Substance: PACLITAXEL
     Indication: PRODUCT USED FOR UNKNOWN INDICATION
     Dosage: 160 MILLIGRAM, QD
     Route: 042
     Dates: start: 20190213, end: 20190213
  12. ABRAXANE [Concomitant]
     Active Substance: PACLITAXEL
     Dosage: 160 MILLIGRAM, QD
     Route: 042
     Dates: start: 20190320, end: 20190320
  13. GEMCITABINE [Concomitant]
     Active Substance: GEMCITABINE\GEMCITABINE HYDROCHLORIDE
     Dosage: 1300 MILLIGRAM, QD
     Route: 042
     Dates: start: 20190320, end: 20190320
  14. ELIQUIS [Suspect]
     Active Substance: APIXABAN
     Indication: DEEP VEIN THROMBOSIS
     Dosage: 5 MILLIGRAM, BID
     Route: 048
     Dates: start: 20190128, end: 20190327
  15. ELIQUIS [Suspect]
     Active Substance: APIXABAN
     Indication: PULMONARY EMBOLISM
     Dosage: UNK
     Route: 048
     Dates: start: 20190426
  16. TELMISARTAN. [Concomitant]
     Active Substance: TELMISARTAN
     Indication: PRODUCT USED FOR UNKNOWN INDICATION
     Dosage: 40 MILLIGRAM, QD
     Route: 048
     Dates: start: 20190311

REACTIONS (2)
  - Paralysis [Recovering/Resolving]
  - Cerebral haemorrhage [Recovered/Resolved with Sequelae]

NARRATIVE: CASE EVENT DATE: 20190327
